FAERS Safety Report 5191749-4 (Version None)
Quarter: 2006Q4

REPORT INFORMATION
  Report Type: 
  Country: None (occurrence: None)
  Receive Date: 20061219
  Receipt Date: 20061207
  Transmission Date: 20070319
  Serious: Yes (Other)
  Sender: FDA-Public Use
  Company Number: B0450091A

PATIENT
  Age: 27 Year
  Sex: Female

DRUGS (10)
  1. VENTOLIN [Suspect]
     Indication: DRUG USE FOR UNKNOWN INDICATION
     Dosage: INHALED
     Route: 055
     Dates: start: 20040209
  2. BETAMETHASONE [Suspect]
     Indication: ASTHMA
     Dosage: INTRAVENOUS
     Route: 042
  3. THEOPHYLLINE [Suspect]
     Indication: DRUG USE FOR UNKNOWN INDICATION
     Dosage: 800 MG / PER DAY
  4. LIGNOCAINE HYDROCHLORIDE (FORMULATION UNKNOWN) (LIDOCAINE HCL) [Suspect]
     Indication: DRUG USE FOR UNKNOWN INDICATION
     Dosage: FIVE TIMES PER DAY / NEBULI
  5. UNKNOWN [Suspect]
     Indication: DRUG USE FOR UNKNOWN INDICATION
     Dosage: PER DAY / INTRAVENOUS INFUSION
     Route: 042
     Dates: start: 20040209
  6. AMINOPHYLLINE [Suspect]
     Indication: DRUG USE FOR UNKNOWN INDICATION
     Dosage: PER DAY / INTRAVENOUS INFUS
     Route: 042
     Dates: start: 20040209
  7. BUDESONIDE [Concomitant]
  8. SALMETEROL XINAFOATE [Concomitant]
  9. BETAMETHASONE [Concomitant]
  10. MONTELUKAST SODIUM [Concomitant]

REACTIONS (7)
  - ASTHMA [None]
  - CAESAREAN SECTION [None]
  - CONDITION AGGRAVATED [None]
  - DRUG EXPOSURE DURING PREGNANCY [None]
  - NO THERAPEUTIC RESPONSE [None]
  - PREGNANCY [None]
  - PREMATURE LABOUR [None]
